FAERS Safety Report 5651240-5 (Version None)
Quarter: 2008Q1

REPORT INFORMATION
  Report Type: 
  Country: None (occurrence: None)
  Receive Date: 20080131
  Receipt Date: 20071010
  Transmission Date: 20080703
  Serious: No
  Sender: FDA-Public Use
  Company Number: US200710003250

PATIENT
  Sex: Female

DRUGS (4)
  1. BYETTA [Suspect]
     Indication: INSULIN-REQUIRING TYPE 2 DIABETES MELLITUS
     Dosage: SUBCUTANEOUS
     Route: 058
  2. SYMLIN [Concomitant]
  3. NOVOLOG [Concomitant]
  4. LEVEMIR (INSULIN DETERMIR) [Concomitant]

REACTIONS (1)
  - BLOOD GLUCOSE INCREASED [None]
